FAERS Safety Report 6627958-4 (Version None)
Quarter: 2010Q1

REPORT INFORMATION
  Report Type: 
  Country: None (occurrence: None)
  Receive Date: 20100311
  Receipt Date: 20090418
  Transmission Date: 20100710
  Serious: No
  Sender: FDA-Public Use
  Company Number: A0779518A

PATIENT
  Sex: Male

DRUGS (1)
  1. NICORETTE [Suspect]
     Dates: start: 20090404

REACTIONS (2)
  - ERECTILE DYSFUNCTION [None]
  - LIBIDO DECREASED [None]
